FAERS Safety Report 17988581 (Version 1)
Quarter: 2020Q3

REPORT INFORMATION
  Report Type: Spontaneous
  Country: US (occurrence: US)
  Receive Date: 20200706
  Receipt Date: 20200706
  Transmission Date: 20201103
  Serious: Yes (Other)
  Sender: FDA-Public Use
  Company Number: None

PATIENT
  Age: 56 Year
  Sex: Female

DRUGS (1)
  1. OLUMIANT [Suspect]
     Active Substance: BARICITINIB
     Indication: RHEUMATOID ARTHRITIS
     Route: 048
     Dates: start: 20200603, end: 20200610

REACTIONS (4)
  - Vomiting [None]
  - Abdominal pain upper [None]
  - Haematemesis [None]
  - Blister [None]

NARRATIVE: CASE EVENT DATE: 20200603
